FAERS Safety Report 23800188 (Version 2)
Quarter: 2024Q3

REPORT INFORMATION
  Report Type: Spontaneous
  Country: AT (occurrence: AT)
  Receive Date: 20240430
  Receipt Date: 20240704
  Transmission Date: 20241016
  Serious: Yes (Hospitalization, Other)
  Sender: ABBVIE
  Company Number: AT-ABBVIE-5733596

PATIENT
  Age: 30 Year
  Sex: Female
  Weight: 51 kg

DRUGS (3)
  1. HUMIRA [Suspect]
     Active Substance: ADALIMUMAB
     Indication: Crohn^s disease
     Route: 058
  2. RINVOQ [Suspect]
     Active Substance: UPADACITINIB
     Indication: Crohn^s disease
     Route: 048
     Dates: start: 20220919, end: 20220919
  3. RINVOQ [Suspect]
     Active Substance: UPADACITINIB
     Indication: Crohn^s disease
     Route: 048

REACTIONS (5)
  - Anastomotic stenosis [Unknown]
  - Abscess [Recovered/Resolved]
  - Drug ineffective [Unknown]
  - Abdominal pain [Unknown]
  - Abdominal tenderness [Unknown]

NARRATIVE: CASE EVENT DATE: 20230313
